APPROVED DRUG PRODUCT: BUMETANIDE
Active Ingredient: BUMETANIDE
Strength: 0.25MG/ML
Dosage Form/Route: INJECTABLE;INJECTION
Application: A216434 | Product #001 | TE Code: AP
Applicant: GLAND PHARMA LTD
Approved: May 26, 2022 | RLD: No | RS: No | Type: RX